FAERS Safety Report 18700638 (Version 3)
Quarter: 2021Q1

REPORT INFORMATION
  Report Type: Spontaneous
  Country: DE (occurrence: DE)
  Receive Date: 20210105
  Receipt Date: 20210120
  Transmission Date: 20210419
  Serious: Yes (Death, Hospitalization, Other)
  Sender: FDA-Public Use
  Company Number: DE-SHILPA MEDICARE LIMITED-SML-DE-2020-00884

PATIENT
  Age: 55 Year
  Sex: Male
  Weight: 65.7 kg

DRUGS (3)
  1. VARGATEF [Suspect]
     Active Substance: NINTEDANIB
     Route: 065
  2. VARGATEF [Suspect]
     Active Substance: NINTEDANIB
     Indication: LUNG ADENOCARCINOMA
     Route: 065
     Dates: start: 20201114, end: 20201216
  3. DOCETAXEL, UNKNOWN [Suspect]
     Active Substance: DOCETAXEL
     Indication: LUNG ADENOCARCINOMA
     Dosage: DAILY DOSE: 75 MG/M2 BODY SURFACE AREA, LIQUID
     Route: 065
     Dates: start: 20201113, end: 20201204

REACTIONS (2)
  - General physical health deterioration [Fatal]
  - Febrile neutropenia [Recovered/Resolved]

NARRATIVE: CASE EVENT DATE: 20201120
